FAERS Safety Report 6094691-X (Version None)
Quarter: 2009Q1

REPORT INFORMATION
  Report Type: 
  Country: None (occurrence: None)
  Receive Date: 20090224
  Receipt Date: 20090216
  Transmission Date: 20090719
  Serious: Yes (Life-Threatening)
  Sender: FDA-Public Use
  Company Number: JHP200900052

PATIENT
  Age: 34 Year
  Sex: Female

DRUGS (1)
  1. PITOCIN [Suspect]

REACTIONS (3)
  - ANAPHYLACTIC REACTION [None]
  - DRUG EXPOSURE DURING PREGNANCY [None]
  - ELECTROMECHANICAL DISSOCIATION [None]
